FAERS Safety Report 9633561 (Version 1)
Quarter: 2013Q4

REPORT INFORMATION
  Report Type: Report from Study
  Country: MX (occurrence: MX)
  Receive Date: 20131021
  Receipt Date: 20131021
  Transmission Date: 20140711
  Serious: Yes (Hospitalization)
  Sender: FDA-Public Use
  Company Number: PHHY2013MX116384

PATIENT
  Age: 49 Year
  Sex: Female

DRUGS (2)
  1. ONBREZ [Suspect]
     Indication: RESPIRATORY DISORDER
     Dosage: 150 UG, QD
     Dates: start: 201310
  2. ONBREZ [Suspect]
     Indication: OFF LABEL USE

REACTIONS (3)
  - Spinal disorder [Recovered/Resolved]
  - Spinal pain [Recovered/Resolved]
  - Abasia [Recovered/Resolved]
